FAERS Safety Report 14085268 (Version 4)
Quarter: 2017Q4

REPORT INFORMATION
  Report Type: Spontaneous
  Country: US (occurrence: US)
  Receive Date: 20171013
  Receipt Date: 20171121
  Transmission Date: 20180321
  Serious: No
  Sender: FDA-Public Use
  Company Number: US-PFIZER INC-2017440667

PATIENT
  Age: 74 Year
  Sex: Male
  Weight: 107.9 kg

DRUGS (7)
  1. LYRICA [Suspect]
     Active Substance: PREGABALIN
     Indication: PAIN IN EXTREMITY
     Dosage: 225 MG, 1X/DAY (IN THE EVENING FOR A WEEK)
  2. LYRICA [Suspect]
     Active Substance: PREGABALIN
     Dosage: 300 MG, TWICE DAILY
  3. LYRICA [Suspect]
     Active Substance: PREGABALIN
     Indication: HYPOAESTHESIA
     Dosage: 150 MG, 1X/DAY (EVENING FOR A WEEK)
  4. LYRICA [Suspect]
     Active Substance: PREGABALIN
     Dosage: 300 MG, 1X/DAY (IN THE MORNING)
  5. LYRICA [Suspect]
     Active Substance: PREGABALIN
     Indication: NEUROPATHY PERIPHERAL
     Dosage: 75 MG, 1X/DAY(EVENING FOR 7 DAYS)
  6. LYRICA [Suspect]
     Active Substance: PREGABALIN
     Dosage: 300 MG, 1X/DAY (IN THE EVENING FOR A WEEK)/(EVENING FOR 7 DAYS)
  7. LYRICA [Suspect]
     Active Substance: PREGABALIN
     Dosage: 300 MG, 1X/DAY
     Route: 048

REACTIONS (5)
  - Memory impairment [Unknown]
  - Peripheral swelling [Unknown]
  - Product use issue [Unknown]
  - Gait disturbance [Unknown]
  - Drug ineffective [Unknown]
